FAERS Safety Report 18197922 (Version 1)
Quarter: 2020Q3

REPORT INFORMATION
  Report Type: Spontaneous
  Country: FR (occurrence: FR)
  Receive Date: 20200826
  Receipt Date: 20200826
  Transmission Date: 20201103
  Serious: Yes (Other)
  Sender: FDA-Public Use
  Company Number: FR-PFIZER INC-2020325597

PATIENT
  Age: 43 Year
  Sex: Male
  Weight: 69 kg

DRUGS (6)
  1. LINEZOLID. [Suspect]
     Active Substance: LINEZOLID
     Indication: OSTEITIS
     Dosage: 1200 MG, 1X/DAY
     Route: 048
     Dates: start: 20200701, end: 20200709
  2. ERYTHROCINE [ERYTHROMYCIN] [Suspect]
     Active Substance: ERYTHROMYCIN
     Indication: OSTEITIS
     Dosage: 750 MG, 1X/DAY
     Route: 041
     Dates: start: 20200629, end: 20200709
  3. CIFLOX [CIPROFLOXACIN] [Suspect]
     Active Substance: CIPROFLOXACIN
     Indication: OSTEITIS
     Dosage: 1500 MG, 1X/DAY
     Route: 048
     Dates: start: 20200623, end: 20200709
  4. LASILIX [FUROSEMIDE] [Suspect]
     Active Substance: FUROSEMIDE
     Indication: OEDEMA
     Dosage: 80 MG, 1X/DAY
     Route: 048
     Dates: start: 20200628, end: 20200708
  5. PRIMPERAN [Suspect]
     Active Substance: METOCLOPRAMIDE HYDROCHLORIDE
     Indication: NAUSEA
     Dosage: UNK
     Route: 041
     Dates: start: 20200705, end: 20200708
  6. CEFEPIME [Suspect]
     Active Substance: CEFEPIME HYDROCHLORIDE
     Indication: OSTEITIS
     Dosage: 6 G, 1X/DAY
     Route: 041
     Dates: start: 20200624, end: 20200708

REACTIONS (3)
  - Encephalopathy [Recovered/Resolved]
  - Off label use [Unknown]
  - Product use in unapproved indication [Unknown]

NARRATIVE: CASE EVENT DATE: 20200701
